FAERS Safety Report 22179132 (Version 1)
Quarter: 2023Q2

REPORT INFORMATION
  Report Type: Spontaneous
  Country: NO (occurrence: NO)
  Receive Date: 20230406
  Receipt Date: 20230406
  Transmission Date: 20230722
  Serious: Yes (Hospitalization, Disabling, Other)
  Sender: FDA-Public Use
  Company Number: None

PATIENT
  Age: 73 Year
  Sex: Female
  Weight: 80 kg

DRUGS (6)
  1. PREDNISOLONE [Suspect]
     Active Substance: PREDNISOLONE
     Indication: Giant cell arteritis
     Dates: start: 20220424
  2. SOLU-MEDROL [Suspect]
     Active Substance: METHYLPREDNISOLONE SODIUM SUCCINATE
     Indication: Giant cell arteritis
     Dates: start: 20220421
  3. METHOTREXATE [Suspect]
     Active Substance: METHOTREXATE
     Indication: Giant cell arteritis
     Dates: start: 202204, end: 202207
  4. EDOXABAN TOSYLATE [Concomitant]
     Active Substance: EDOXABAN TOSYLATE
     Indication: Atrial fibrillation
     Dates: start: 2019
  5. IRON [Concomitant]
     Active Substance: IRON
     Indication: Product used for unknown indication
  6. B vitamin [Concomitant]
     Indication: Product used for unknown indication

REACTIONS (11)
  - Muscular weakness [Recovering/Resolving]
  - Bedridden [Recovering/Resolving]
  - Gait inability [Recovering/Resolving]
  - Balance disorder [Unknown]
  - Pelvic fracture [Recovering/Resolving]
  - Gait disturbance [Recovering/Resolving]
  - Fall [Unknown]
  - Osteonecrosis [Recovered/Resolved]
  - Tremor [Recovering/Resolving]
  - Loss of personal independence in daily activities [Unknown]
  - Hypoaesthesia [Unknown]

NARRATIVE: CASE EVENT DATE: 20220503
